FAERS Safety Report 10781301 (Version 5)
Quarter: 2016Q1

REPORT INFORMATION
  Report Type: Spontaneous
  Country: US (occurrence: US)
  Receive Date: 20150210
  Receipt Date: 20160314
  Transmission Date: 20160525
  Serious: Yes (Hospitalization, Other)
  Sender: FDA-Public Use
  Company Number: US-GLAXOSMITHKLINE-A1074396A

PATIENT
  Age: 65 Year
  Sex: Male

DRUGS (7)
  1. FLOLAN [Suspect]
     Active Substance: EPOPROSTENOL SODIUM
     Dosage: UNK, CO
     Route: 042
  2. COUMADIN [Concomitant]
     Active Substance: WARFARIN SODIUM
  3. FLOLAN [Suspect]
     Active Substance: EPOPROSTENOL SODIUM
     Indication: PULMONARY ARTERIAL HYPERTENSION
     Dosage: 40.75 NG/KG/MIN, VIAL STRENGTH 1.5, 60,000 NG/ML CONCENTRATION, PUMP RATE 80 ML/DAY
     Route: 042
     Dates: start: 20010803
  4. LETAIRIS [Concomitant]
     Active Substance: AMBRISENTAN
  5. FLOLAN [Suspect]
     Active Substance: EPOPROSTENOL SODIUM
     Dosage: UNK, CO
     Route: 042
  6. FLOLAN [Suspect]
     Active Substance: EPOPROSTENOL SODIUM
     Dosage: UNK, CO
     Route: 042
  7. FLOLAN [Suspect]
     Active Substance: EPOPROSTENOL SODIUM
     Dosage: 40.24 NG/KG/MIN CONTINUOUS, VIAL STRENGTH: 1.5 MG, CONCENTRATION: 60,000 NG/ML, PUMP RATE: 79 ML/DAY
     Route: 042
     Dates: start: 20070115

REACTIONS (5)
  - Device related infection [Unknown]
  - Infusion site haemorrhage [Unknown]
  - Hospitalisation [Not Recovered/Not Resolved]
  - Staphylococcal infection [Unknown]
  - Complication associated with device [Unknown]

NARRATIVE: CASE EVENT DATE: 201509
